FAERS Safety Report 25227272 (Version 1)
Quarter: 2025Q2

REPORT INFORMATION
  Report Type: Spontaneous
  Country: US (occurrence: US)
  Receive Date: 20250422
  Receipt Date: 20250422
  Transmission Date: 20250717
  Serious: Yes (Other)
  Sender: SMITH AND NEPHEW
  Company Number: US-SMITH AND NEPHEW, INC-2025SMT00010

PATIENT
  Sex: Male

DRUGS (2)
  1. COLLAGENASE [Suspect]
     Active Substance: COLLAGENASE CLOSTRIDIUM HISTOLYTICUM
     Indication: Peyronie^s disease
     Route: 026
  2. PHOSPHODIESTERASE 5 INHIBITORS (PDE5i) [Concomitant]
     Indication: Peyronie^s disease
     Route: 026

REACTIONS (1)
  - Fracture of penis [Unknown]
